FAERS Safety Report 5491345-5 (Version None)
Quarter: 2007Q4

REPORT INFORMATION
  Report Type: 
  Country: None (occurrence: None)
  Receive Date: 20071017
  Receipt Date: 20071001
  Transmission Date: 20080405
  Serious: Yes (Other)
  Sender: FDA-Public Use
  Company Number: DSA_30734_2007

PATIENT
  Age: 60 Year
  Sex: Female

DRUGS (10)
  1. ATIVAN [Suspect]
     Indication: DRUG USE FOR UNKNOWN INDICATION
     Dosage: 1 MG TID ORAL
     Route: 048
  2. FUROSEMIDE [Suspect]
     Indication: DRUG USE FOR UNKNOWN INDICATION
  3. HALCION [Suspect]
     Indication: DRUG USE FOR UNKNOWN INDICATION
     Dosage: ORAL
     Route: 048
  4. MOS           (MOS - MORPHINE HYDROCHLORIDE) 10 MG [Suspect]
     Indication: DRUG USE FOR UNKNOWN INDICATION
     Dosage: 10 MG 12X/DAY ORAL
     Route: 048
  5. SURFAK [Concomitant]
  6. SPIRONOLACTONE [Concomitant]
  7. CHLORAL HYDRATE [Concomitant]
  8. CHLORPHENIRAMINE MALEATE [Concomitant]
  9. DIMENHYDRINATE [Concomitant]
  10. SINEQUAN [Suspect]

REACTIONS (3)
  - PRURITUS [None]
  - RASH MACULO-PAPULAR [None]
  - TOXIC EPIDERMAL NECROLYSIS [None]
